FAERS Safety Report 6922049-7 (Version None)
Quarter: 2010Q3

REPORT INFORMATION
  Report Type: 
  Country: None (occurrence: None)
  Receive Date: 20100812
  Receipt Date: 20100805
  Transmission Date: 20110219
  Serious: Yes (Disabling)
  Sender: FDA-Public Use
  Company Number: FR-ELI_LILLY_AND_COMPANY-FR201007006086

PATIENT
  Sex: Male
  Weight: 93 kg

DRUGS (16)
  1. DROTRECOGIN ALFA (ACTIVATED) [Suspect]
     Indication: SEPTIC SHOCK
     Dosage: 24 D/F, EVERY HOUR
     Route: 042
     Dates: start: 20100427, end: 20100501
  2. PIPERACILLIN W/TAZOBACTAM [Concomitant]
     Indication: PERITONITIS
     Dates: start: 20100426, end: 20100428
  3. NOREPINEPHRINE BITARTRATE [Concomitant]
     Indication: SHOCK
     Dates: start: 20100426, end: 20100513
  4. FENATYL [Concomitant]
     Indication: ANALGESIC THERAPY
     Dates: start: 20100426, end: 20100513
  5. MIDAZOLAM HCL [Concomitant]
     Indication: SEDATION
     Dates: start: 20100426, end: 20100505
  6. ASPIRINE [Concomitant]
     Indication: THERAPEUTIC PROCEDURE
     Dates: end: 20100521
  7. HEPARIN [Concomitant]
     Indication: PROPHYLAXIS
     Dates: start: 20100427, end: 20100612
  8. INSULINE [Concomitant]
     Indication: BLOOD GLUCOSE ABNORMAL
     Dates: start: 20100428, end: 20100524
  9. NEFOPAM [Concomitant]
     Indication: ANALGESIC THERAPY
     Dates: start: 20100429, end: 20100502
  10. HYDROCORTISONE HEMISUCCINATE [Concomitant]
     Indication: SHOCK
     Dates: start: 20100502, end: 20100508
  11. AMOXICILLIN AND CLAVULANATE POTASSIUM [Concomitant]
     Indication: PERITONITIS
     Dates: start: 20100429, end: 20100503
  12. ESOMEPRAZOLE MAGNESIUM [Concomitant]
     Indication: PROPHYLAXIS
     Dates: start: 20100429, end: 20100528
  13. PARACETAMOL [Concomitant]
     Indication: ANALGESIC THERAPY
     Dates: start: 20100429, end: 20100501
  14. AMIODARONE [Concomitant]
     Indication: TACHYCARDIA
     Dates: start: 20100430, end: 20100430
  15. ENOXAPARIN SODIUM [Concomitant]
     Indication: RENAL DISORDER
     Dates: start: 20100430, end: 20100517
  16. SUCCINYLCHOLINE CHLORIDE [Concomitant]
     Indication: MUSCLE RELAXANT THERAPY
     Dates: start: 20100503, end: 20100503

REACTIONS (1)
  - PERIPHERAL ISCHAEMIA [None]
